FAERS Safety Report 6649436-9 (Version None)
Quarter: 2010Q1

REPORT INFORMATION
  Report Type: 
  Country: None (occurrence: None)
  Receive Date: 20100322
  Receipt Date: 20100309
  Transmission Date: 20100710
  Serious: Yes (Hospitalization, Other)
  Sender: FDA-Public Use
  Company Number: 236701J08USA

PATIENT
  Age: 66 Year
  Sex: Female
  Weight: 73 kg

DRUGS (4)
  1. REBIF [Suspect]
     Indication: MULTIPLE SCLEROSIS
     Dosage: 44MCG, 3 IN 1 WEEKS, SUBCUTANEOUS
     Route: 058
     Dates: start: 20030402
  2. THYROID TAB [Concomitant]
  3. PROVIGIL [Concomitant]
  4. EFFEXOR [Concomitant]

REACTIONS (6)
  - HYPOAESTHESIA [None]
  - JOINT HYPEREXTENSION [None]
  - JOINT SPRAIN [None]
  - MENISCUS LESION [None]
  - NEUROPATHY PERIPHERAL [None]
  - PARAESTHESIA [None]
